FAERS Safety Report 10062725 (Version 2)
Quarter: 2015Q2

REPORT INFORMATION
  Report Type: Spontaneous
  Country: US (occurrence: US)
  Receive Date: 20140407
  Receipt Date: 20150407
  Transmission Date: 20150821
  Serious: Yes (Death, Life-Threatening, Hospitalization, Other)
  Sender: FDA-Public Use
  Company Number: US-009507513-1404USA003882

PATIENT
  Sex: Male
  Weight: 104.31 kg

DRUGS (1)
  1. JANUMET [Suspect]
     Active Substance: METFORMIN HYDROCHLORIDE\SITAGLIPTIN PHOSPHATE
     Indication: TYPE 2 DIABETES MELLITUS
     Dosage: 50MG-500MG, TWICE DAILY
     Route: 048
     Dates: start: 20090601, end: 20121227

REACTIONS (15)
  - White blood cell count increased [Unknown]
  - Hypertension [Unknown]
  - Skeletal injury [Unknown]
  - Breath sounds abnormal [Unknown]
  - Nephrolithiasis [Unknown]
  - Hepatic lesion [Unknown]
  - Lymphadenopathy [Unknown]
  - Bile duct stenosis [Unknown]
  - Adenocarcinoma pancreas [Fatal]
  - Renal cell carcinoma [Unknown]
  - Haemangioma of liver [Unknown]
  - Fall [Unknown]
  - Duodenal ulcer [Unknown]
  - Bile duct stent insertion [Unknown]
  - Gynaecomastia [Unknown]

NARRATIVE: CASE EVENT DATE: 201211
